FAERS Safety Report 5075517-X (Version None)
Quarter: 2006Q3

REPORT INFORMATION
  Report Type: 
  Country: None (occurrence: None)
  Receive Date: 20060803
  Receipt Date: 20060803
  Transmission Date: 20061208
  Serious: Yes (Death)
  Sender: FDA-Public Use
  Company Number: None

PATIENT
  Age: 48 Year
  Sex: Male
  Weight: 81.1939 kg

DRUGS (8)
  1. ALDESLEUKIN, CHIRON [Suspect]
     Indication: RENAL CANCER METASTATIC
     Dosage: 51MU  EVERY 8 HOURS  IV   SEE NARRATIVE
     Route: 042
  2. AVASTIN [Suspect]
     Dosage: 855MG  EVERY 2 WEEKS  IV
     Route: 042
     Dates: start: 20060404, end: 20060802
  3. BENADRYL [Concomitant]
  4. INDOCIN [Concomitant]
  5. ANZEMET [Concomitant]
  6. LEVAQUIN [Concomitant]
  7. EUCERIN CREAM [Concomitant]
  8. SARNA CREAM [Concomitant]

REACTIONS (5)
  - CARDIOGENIC SHOCK [None]
  - CHEST DISCOMFORT [None]
  - CHEST PAIN [None]
  - RESPIRATORY FAILURE [None]
  - THERAPY NON-RESPONDER [None]
